FAERS Safety Report 6871125-6 (Version None)
Quarter: 2010Q3

REPORT INFORMATION
  Report Type: 
  Country: None (occurrence: None)
  Receive Date: 20100723
  Receipt Date: 20100712
  Transmission Date: 20110219
  Serious: Yes (Hospitalization, Disabling, Other)
  Sender: FDA-Public Use
  Company Number: US-PFIZER INC-2010040484

PATIENT
  Sex: Male

DRUGS (6)
  1. CHANTIX [Suspect]
     Indication: SMOKING CESSATION THERAPY
     Dosage: STARTING PACK
     Dates: start: 20080228, end: 20080403
  2. ACETAMINOPHEN AND HYDROCODONE BITARTRATE [Concomitant]
     Indication: PAIN
     Dosage: UNK
     Dates: start: 20030101
  3. HYZAAR [Concomitant]
     Indication: HYPERTENSION
     Dosage: UNK
     Dates: start: 20050101, end: 20090101
  4. FENTANYL [Concomitant]
     Indication: PAIN
     Dosage: UNK
     Dates: start: 20070101, end: 20090101
  5. CEPHALEXIN [Concomitant]
     Indication: INFECTION
     Dosage: UNK
     Dates: start: 20030101, end: 20090101
  6. IBUPROFEN [Concomitant]
     Indication: ANALGESIC THERAPY
     Dosage: UNK
     Dates: start: 20060101, end: 20090101

REACTIONS (11)
  - ARTHRITIS [None]
  - FACE INJURY [None]
  - FACIAL BONES FRACTURE [None]
  - JOINT DISLOCATION [None]
  - LOSS OF CONSCIOUSNESS [None]
  - MENTAL DISORDER [None]
  - NECK INJURY [None]
  - RIB FRACTURE [None]
  - ROAD TRAFFIC ACCIDENT [None]
  - UPPER LIMB FRACTURE [None]
  - WRIST FRACTURE [None]
